FAERS Safety Report 25356638 (Version 1)
Quarter: 2025Q2

REPORT INFORMATION
  Report Type: Report from Study
  Country: US (occurrence: US)
  Receive Date: 20250526
  Receipt Date: 20250526
  Transmission Date: 20250716
  Serious: Yes (Hospitalization)
  Sender: JOHNSON AND JOHNSON
  Company Number: US-JNJFOC-20250523046

PATIENT
  Age: 3 Decade
  Sex: Female

DRUGS (5)
  1. SPRAVATO [Suspect]
     Active Substance: ESKETAMINE
     Indication: Depression
     Dates: start: 20241210, end: 20241223
  2. SPRAVATO [Suspect]
     Active Substance: ESKETAMINE
     Dates: start: 20241226, end: 20250211
  3. SPRAVATO [Suspect]
     Active Substance: ESKETAMINE
     Dates: start: 20250218, end: 20250218
  4. SPRAVATO [Suspect]
     Active Substance: ESKETAMINE
     Dates: start: 20250227, end: 20250311
  5. SPRAVATO [Suspect]
     Active Substance: ESKETAMINE
     Dates: start: 20250318, end: 20250318

REACTIONS (1)
  - Eating disorder [Unknown]
